FAERS Safety Report 10667066 (Version 1)
Quarter: 2014Q4

REPORT INFORMATION
  Report Type: Spontaneous
  Country: US (occurrence: None)
  Receive Date: 20141219
  Receipt Date: 20141219
  Transmission Date: 20150529
  Serious: Yes (Hospitalization, Disabling, Other)
  Sender: FDA-Public Use
  Company Number: None

PATIENT
  Age: 15 Year
  Sex: Female
  Weight: 68.04 kg

DRUGS (1)
  1. MIRALAX [Suspect]
     Active Substance: POLYETHYLENE GLYCOL 3350
     Indication: CONSTIPATION
     Dosage: TAKE 17 MG DAILY ONCE DAILY TAKEN BY MOUTH
     Route: 048
     Dates: start: 20101002, end: 20140801

REACTIONS (2)
  - Depression suicidal [None]
  - Suicide attempt [None]

NARRATIVE: CASE EVENT DATE: 20141025
